FAERS Safety Report 5546768-2 (Version None)
Quarter: 2007Q4

REPORT INFORMATION
  Report Type: 
  Country: None (occurrence: None)
  Receive Date: 20071207
  Receipt Date: 20071207
  Transmission Date: 20080405
  Serious: No
  Sender: FDA-Public Use
  Company Number: None

PATIENT
  Sex: Female

DRUGS (1)
  1. LYRICA [Suspect]
     Indication: FIBROMYALGIA
     Dosage: 75MG  BID  PO
     Route: 048
     Dates: start: 20070911, end: 20071206

REACTIONS (4)
  - ASTHENIA [None]
  - DYSPHONIA [None]
  - INFLUENZA LIKE ILLNESS [None]
  - POLYURIA [None]
